FAERS Safety Report 5319627-8 (Version None)
Quarter: 2007Q2

REPORT INFORMATION
  Report Type: 
  Country: None (occurrence: None)
  Receive Date: 20070503
  Receipt Date: 20070427
  Transmission Date: 20071010
  Serious: Yes (Hospitalization)
  Sender: FDA-Public Use
  Company Number: 2007-02092

PATIENT
  Age: 11 Month
  Sex: Male

DRUGS (4)
  1. FERRLECIT [Suspect]
     Indication: IRON DEFICIENCY ANAEMIA
     Dosage: SEE IMAGE
     Route: 042
     Dates: start: 20070411, end: 20070411
  2. FERRLECIT [Suspect]
     Indication: IRON DEFICIENCY ANAEMIA
     Dosage: SEE IMAGE
     Route: 042
     Dates: start: 20070412, end: 20070412
  3. LACTOBACILLUS ACIDOPHILUS (LACTOGERMINA PLUS) (LACTOBACILLUS ADICOPHIL [Concomitant]
  4. SODIUM CHLORIDE (SALINE SOLUTION) (SODIUM CHLORIDE) [Concomitant]

REACTIONS (3)
  - HYPERTONIA [None]
  - PALLOR [None]
  - RASH MACULO-PAPULAR [None]
